FAERS Safety Report 22264588 (Version 1)
Quarter: 2023Q2

REPORT INFORMATION
  Report Type: Other
  Country: US (occurrence: None)
  Receive Date: 20230428
  Receipt Date: 20230428
  Transmission Date: 20230721
  Serious: Yes (Other)
  Sender: FDA-Public Use
  Company Number: US-ROCHE-2143693

PATIENT
  Age: 52 Year
  Sex: Female
  Weight: 63.560 kg

DRUGS (55)
  1. OCREVUS [Suspect]
     Active Substance: OCRELIZUMAB
     Indication: Primary progressive multiple sclerosis
     Dosage: HALF THE DOSE INFUSION
     Route: 042
     Dates: start: 20180611
  2. OCREVUS [Suspect]
     Active Substance: OCRELIZUMAB
     Indication: Relapsing-remitting multiple sclerosis
     Route: 042
     Dates: start: 20181228
  3. OCREVUS [Suspect]
     Active Substance: OCRELIZUMAB
     Indication: Secondary progressive multiple sclerosis
     Dosage: ON DAY 1 AND DAY 15?SECOND HALF THE DOSE INFUSION
     Route: 042
     Dates: start: 20180625
  4. OCREVUS [Suspect]
     Active Substance: OCRELIZUMAB
     Route: 042
     Dates: start: 2016
  5. OCREVUS [Suspect]
     Active Substance: OCRELIZUMAB
     Route: 042
     Dates: start: 201706
  6. OCREVUS [Suspect]
     Active Substance: OCRELIZUMAB
     Route: 042
     Dates: start: 2015
  7. TRAMADOL [Suspect]
     Active Substance: TRAMADOL
     Indication: Pain
     Route: 065
  8. CLONAZEPAM [Suspect]
     Active Substance: CLONAZEPAM
     Indication: Product used for unknown indication
     Dosage: TAKES MORNING AND NIGHT COULD NOT SEE THE MANUFACTURER^S NAME ON THE BOTTLE
     Route: 048
     Dates: start: 202207
  9. BOTOX [Suspect]
     Active Substance: ONABOTULINUMTOXINA
     Indication: Tremor
     Route: 065
  10. ADDERALL [Concomitant]
     Active Substance: AMPHETAMINE ASPARTATE\AMPHETAMINE SULFATE\DEXTROAMPHETAMINE SACCHARATE\DEXTROAMPHETAMINE SULFATE
     Indication: Fatigue
     Dosage: 30 MG ONCE IN THE MORNING; ONGOING:YES
     Route: 048
     Dates: start: 2010
  11. ADDERALL [Concomitant]
     Active Substance: AMPHETAMINE ASPARTATE\AMPHETAMINE SULFATE\DEXTROAMPHETAMINE SACCHARATE\DEXTROAMPHETAMINE SULFATE
     Route: 048
     Dates: start: 2016
  12. CANNABIS SATIVA SUBSP. INDICA TOP [Concomitant]
     Active Substance: CANNABIS SATIVA SUBSP. INDICA TOP
     Indication: Pain
     Dosage: ONGOING:YES
     Dates: start: 201904
  13. CANNABIS SATIVA SUBSP. INDICA TOP [Concomitant]
     Active Substance: CANNABIS SATIVA SUBSP. INDICA TOP
     Dosage: ONCE OR TWICE A DAY FOR PAIN
  14. BETHANECHOL [Concomitant]
     Active Substance: BETHANECHOL
     Dosage: ONGOING:YES
  15. TAMSULOSIN [Concomitant]
     Active Substance: TAMSULOSIN
     Dosage: ONCE IN THE MORNING ONGOING:YES
  16. ESTER C (UNITED STATES) [Concomitant]
     Dosage: ONGOING:YES
  17. KRILL OIL [Concomitant]
     Active Substance: DIETARY SUPPLEMENT\KRILL OIL
     Dosage: ONCE A DAY;ONGOING YES
  18. KRILL OIL [Concomitant]
     Active Substance: DIETARY SUPPLEMENT\KRILL OIL
     Route: 048
     Dates: start: 2016
  19. DALFAMPRIDINE [Concomitant]
     Active Substance: DALFAMPRIDINE
     Dosage: TWICE A DAY, 12 HOURS APART
  20. RESTASIS [Concomitant]
     Active Substance: CYCLOSPORINE
     Dosage: EVERY 12 HOURS
  21. CRANBERRY [Concomitant]
     Active Substance: CRANBERRY
     Dosage: ONCE A DAY;ONGOING:YES
  22. CRANBERRY [Concomitant]
     Active Substance: CRANBERRY
  23. GABAPENTIN [Concomitant]
     Active Substance: GABAPENTIN
     Dosage: ONGOING:NO
  24. GABAPENTIN [Concomitant]
     Active Substance: GABAPENTIN
     Dosage: ONGOING:YES
  25. OMEPRAZOLE [Concomitant]
     Active Substance: OMEPRAZOLE
     Indication: Gastrooesophageal reflux disease
     Route: 048
     Dates: start: 2017
  26. OMEPRAZOLE [Concomitant]
     Active Substance: OMEPRAZOLE
     Route: 048
     Dates: start: 2015
  27. PRIMIDONE [Concomitant]
     Active Substance: PRIMIDONE
     Indication: Tremor
     Route: 048
  28. PRIMIDONE [Concomitant]
     Active Substance: PRIMIDONE
     Indication: Tremor
     Route: 048
     Dates: start: 202001
  29. PRIMIDONE [Concomitant]
     Active Substance: PRIMIDONE
     Route: 048
     Dates: start: 2015, end: 2017
  30. WELLBUTRIN [Concomitant]
     Active Substance: BUPROPION HYDROCHLORIDE
     Indication: Depression
     Dosage: ONGOING YES
     Route: 048
  31. WELLBUTRIN [Concomitant]
     Active Substance: BUPROPION HYDROCHLORIDE
     Dosage: ONGOING YES
     Route: 048
     Dates: start: 2018
  32. LYRICA [Concomitant]
     Active Substance: PREGABALIN
     Indication: Neuralgia
     Dosage: 100 IN AM , 150 AT HS
     Route: 048
  33. LYRICA [Concomitant]
     Active Substance: PREGABALIN
     Route: 048
     Dates: start: 2019
  34. LYRICA [Concomitant]
     Active Substance: PREGABALIN
     Route: 048
     Dates: start: 202001
  35. LYRICA [Concomitant]
     Active Substance: PREGABALIN
     Route: 048
     Dates: start: 202007
  36. LYRICA [Concomitant]
     Active Substance: PREGABALIN
     Route: 048
     Dates: start: 2020
  37. VITAMIN D3 [Concomitant]
     Active Substance: CHOLECALCIFEROL
     Route: 048
     Dates: start: 2009
  38. VITAMIN D3 [Concomitant]
     Active Substance: CHOLECALCIFEROL
     Route: 048
     Dates: start: 2009
  39. TYLENOL [Concomitant]
     Active Substance: ACETAMINOPHEN
     Route: 048
     Dates: start: 201905
  40. VITAMIN B12 [Concomitant]
     Active Substance: CYANOCOBALAMIN
     Dosage: ONCE A DAY;
  41. HERBALS\TURMERIC [Concomitant]
     Active Substance: HERBALS\TURMERIC
  42. NUEDEXTA [Concomitant]
     Active Substance: DEXTROMETHORPHAN HYDROBROMIDE\QUINIDINE SULFATE
     Route: 048
     Dates: start: 2019
  43. MEMANTINE [Concomitant]
     Active Substance: MEMANTINE
     Route: 048
     Dates: start: 202010
  44. MEMANTINE [Concomitant]
     Active Substance: MEMANTINE
     Route: 048
     Dates: start: 202011
  45. AZO [Concomitant]
     Active Substance: PHENAZOPYRIDINE HYDROCHLORIDE
     Route: 048
     Dates: start: 2009
  46. OMEGA 3 [Concomitant]
     Active Substance: CAPSAICIN
     Dosage: STARTED BEFORE OCREVUS
     Route: 048
     Dates: start: 2009
  47. LORAZEPAM [Concomitant]
     Active Substance: LORAZEPAM
     Indication: Anxiety
     Dosage: UP TO TWICE A DAY AS NEEDED, STARTED 2 YEARS AGO
     Route: 048
     Dates: start: 202007
  48. ZYRTEC [Concomitant]
     Active Substance: CETIRIZINE HYDROCHLORIDE
     Indication: Hypersensitivity
     Route: 048
     Dates: start: 2018
  49. BACLOFEN [Concomitant]
     Active Substance: BACLOFEN
     Dosage: TAKES ONLY AT NIGHT; STARTED AFTER OCREVUS
     Route: 048
  50. BUPROPION [Concomitant]
     Active Substance: BUPROPION
     Indication: Depression
     Dosage: STARTED AFTER OCREVUS
     Route: 048
  51. KRILL OIL [Concomitant]
     Active Substance: DIETARY SUPPLEMENT\KRILL OIL
     Dosage: STARTED BEFORE OCREVUS
     Route: 048
  52. XIIDRA [Concomitant]
     Active Substance: LIFITEGRAST
     Indication: Dry eye
     Dosage: TAKES ONLY AT NIGHT
     Route: 047
     Dates: start: 2021
  53. PROPRANOLOL [Concomitant]
     Active Substance: PROPRANOLOL HYDROCHLORIDE
  54. FLOMAX [Concomitant]
     Active Substance: TAMSULOSIN HYDROCHLORIDE
  55. VITAMIN C [Concomitant]
     Active Substance: ASCORBIC ACID

REACTIONS (46)
  - Nerve block [Unknown]
  - Chondropathy [Unknown]
  - Fall [Unknown]
  - Pain in extremity [Not Recovered/Not Resolved]
  - Arthralgia [Not Recovered/Not Resolved]
  - Asthenia [Not Recovered/Not Resolved]
  - Head injury [Not Recovered/Not Resolved]
  - Joint injury [Not Recovered/Not Resolved]
  - Orthosis user [Not Recovered/Not Resolved]
  - Arthropathy [Recovered/Resolved]
  - Muscular weakness [Not Recovered/Not Resolved]
  - Pain [Not Recovered/Not Resolved]
  - Drug ineffective [Unknown]
  - Visual impairment [Unknown]
  - Tremor [Not Recovered/Not Resolved]
  - Vision blurred [Unknown]
  - Incorrect dose administered [Unknown]
  - Periarthritis [Not Recovered/Not Resolved]
  - Off label use [Unknown]
  - Gait disturbance [Not Recovered/Not Resolved]
  - Arthritis [Not Recovered/Not Resolved]
  - Neuropathy peripheral [Not Recovered/Not Resolved]
  - Depression [Not Recovered/Not Resolved]
  - Photophobia [Unknown]
  - Neuralgia [Not Recovered/Not Resolved]
  - Vitamin D decreased [Unknown]
  - Weight fluctuation [Not Recovered/Not Resolved]
  - Dry eye [Not Recovered/Not Resolved]
  - Crying [Not Recovered/Not Resolved]
  - Anxiety [Not Recovered/Not Resolved]
  - Contusion [Not Recovered/Not Resolved]
  - Gastrooesophageal reflux disease [Not Recovered/Not Resolved]
  - Basal cell carcinoma [Recovered/Resolved]
  - Memory impairment [Not Recovered/Not Resolved]
  - Muscle spasms [Not Recovered/Not Resolved]
  - Myalgia [Not Recovered/Not Resolved]
  - Eye injury [Recovered/Resolved]
  - Eye haemorrhage [Recovered/Resolved]
  - Temperature intolerance [Not Recovered/Not Resolved]
  - Neck pain [Not Recovered/Not Resolved]
  - Nausea [Recovered/Resolved]
  - Grip strength decreased [Not Recovered/Not Resolved]
  - Balance disorder [Not Recovered/Not Resolved]
  - Impaired driving ability [Not Recovered/Not Resolved]
  - Breast mass [Not Recovered/Not Resolved]
  - Urinary tract infection [Recovered/Resolved]

NARRATIVE: CASE EVENT DATE: 20180612
